FAERS Safety Report 4327568-8 (Version None)
Quarter: 2004Q1

REPORT INFORMATION
  Report Type: 
  Country: None (occurrence: None)
  Receive Date: 20040330
  Receipt Date: 20040330
  Transmission Date: 20041129
  Serious: Yes (Other)
  Sender: FDA-Public Use
  Company Number: None

PATIENT
  Sex: Female
  Weight: 56.246 kg

DRUGS (8)
  1. NAMENDA [Suspect]
     Indication: PSYCHOTIC DISORDER
     Dosage: 5 MG DAILY DAILY IN A ORAL
     Route: 048
     Dates: start: 20040325, end: 20040328
  2. ZYPREXA [Concomitant]
  3. HALOPERIDOL [Concomitant]
  4. ZOLOFT [Concomitant]
  5. VITAMIN E [Concomitant]
  6. DOCUSATE CALCIUM [Concomitant]
  7. MULTI-VITAMIN [Concomitant]
  8. ORTHO TRI-CYCLEN [Concomitant]

REACTIONS (2)
  - HYPERHIDROSIS [None]
  - HYPOGLYCAEMIA [None]
